FAERS Safety Report 9187975 (Version 1)
Quarter: 2013Q1

REPORT INFORMATION
  Report Type: Spontaneous
  Country: US (occurrence: US)
  Receive Date: 20130325
  Receipt Date: 20130325
  Transmission Date: 20140127
  Serious: No
  Sender: FDA-Public Use
  Company Number: US-MYLANLABS-2012S1022037

PATIENT
  Age: 61 Year
  Sex: Male
  Weight: 81.65 kg

DRUGS (2)
  1. FENTANYL TRANSDERMAL SYSTEM [Suspect]
     Indication: BACK PAIN
     Dosage: CHANGES Q. 48 HOURS.
     Route: 062
     Dates: start: 2005
  2. NUCYNTA [Concomitant]
     Indication: BREAKTHROUGH PAIN

REACTIONS (1)
  - False negative investigation result [Not Recovered/Not Resolved]
